FAERS Safety Report 17661516 (Version 1)
Quarter: 2020Q2

REPORT INFORMATION
  Report Type: Spontaneous
  Country: US (occurrence: US)
  Receive Date: 20200413
  Receipt Date: 20200413
  Transmission Date: 20200713
  Serious: No
  Sender: FDA-Public Use
  Company Number: None

PATIENT
  Age: 72 Year
  Sex: Male
  Weight: 96.75 kg

DRUGS (8)
  1. BACTRIM DS 800 - 160MG, ORAL [Concomitant]
  2. PREVYMIS [Suspect]
     Active Substance: LETERMOVIR
     Indication: CHRONIC LYMPHOCYTIC LEUKAEMIA
     Route: 048
     Dates: start: 20200111, end: 20200413
  3. CYANOCOBALAMIN 1000 MCG, IJ [Concomitant]
  4. PANTOPRAZOLE SODIUM 40MG, ORAL [Concomitant]
  5. VENCLEXTA 100MG, ORAL [Concomitant]
     Dates: start: 20180116, end: 20190503
  6. POSACONAZOLE 100MG, ORAL [Concomitant]
  7. IMBRUVICA 140MG, ORAL [Concomitant]
     Dates: start: 20140411, end: 20200413
  8. VALACYCLOVIR 500MG ,ORAL [Concomitant]

REACTIONS (1)
  - Hospice care [None]

NARRATIVE: CASE EVENT DATE: 20200413
